FAERS Safety Report 18629124 (Version 2)
Quarter: 2022Q4

REPORT INFORMATION
  Report Type: Spontaneous
  Country: US (occurrence: US)
  Receive Date: 20201217
  Receipt Date: 20221027
  Transmission Date: 20230112
  Serious: Yes (Hospitalization)
  Sender: FDA-Public Use
  Company Number: US-TYCO HEALTHCARE/MALLINCKRODT-T200700270

PATIENT
  Age: 27 Day
  Sex: Male
  Weight: 4.5 kg

DRUGS (3)
  1. TECHNESCAN MAG3 [Suspect]
     Active Substance: TECHNETIUM TC-99M TIATIDE
     Indication: Renal scan
     Route: 042
     Dates: start: 20070227, end: 20070227
  2. LASIX [Concomitant]
     Active Substance: FUROSEMIDE
     Indication: Renal scan
     Dosage: 4 MG GIVEN OVER 5-10 MINUTES
     Route: 042
     Dates: start: 20070227, end: 20070227
  3. SALINE                             /00075401/ [Concomitant]
     Indication: Fluid replacement
     Route: 042
     Dates: start: 20070227, end: 20070227

REACTIONS (8)
  - Ventricular extrasystoles [Unknown]
  - Sinus tachycardia [Unknown]
  - Electrocardiogram ST segment elevation [Unknown]
  - Acidosis [Recovered/Resolved]
  - Cyanosis [Recovered/Resolved]
  - Dyspnoea [Recovered/Resolved]
  - Oxygen saturation decreased [Recovering/Resolving]
  - Unresponsive to stimuli [Unknown]

NARRATIVE: CASE EVENT DATE: 20070227
